FAERS Safety Report 24611307 (Version 3)
Quarter: 2024Q4

REPORT INFORMATION
  Report Type: Spontaneous
  Country: EG (occurrence: EG)
  Receive Date: 20241113
  Receipt Date: 20241202
  Transmission Date: 20250115
  Serious: Yes (Other)
  Sender: NOVO NORDISK
  Company Number: EG-NOVOPROD-1311965

PATIENT
  Age: 73 Year
  Sex: Male

DRUGS (10)
  1. ACTRAPID [Suspect]
     Active Substance: INSULIN HUMAN
     Indication: Diabetes mellitus
     Dosage: 18 U
     Route: 058
  2. INSULIN HUMAN [Suspect]
     Active Substance: INSULIN HUMAN
     Indication: Diabetes mellitus
     Dosage: 56 IU, QD (34 U/ MORNING AND 22 U/NIGHT)
     Route: 058
  3. INSULIN HUMAN [Suspect]
     Active Substance: INSULIN HUMAN
     Dosage: 38 TO 40 U/DAY AND 28 TO 30 U/NIGHT
  4. .ALPHA.-LIPOIC ACID [Concomitant]
     Active Substance: .ALPHA.-LIPOIC ACID
     Indication: Nervous system disorder
     Dosage: 1 TAB DAILY
     Route: 048
  5. GABTIN [Concomitant]
     Indication: Nervous system disorder
     Dosage: 1 TAB DAILY AT NIGHT
     Route: 048
  6. METFORMIN HYDROCHLORIDE [Concomitant]
     Active Substance: METFORMIN HYDROCHLORIDE
     Indication: Diabetes mellitus
     Dosage: 1 TAB MORNING/1 TAB NIGHT
     Route: 048
  7. NEBIVOLOL [Concomitant]
     Active Substance: NEBIVOLOL
     Indication: Hypertension
     Dosage: 1 TAB DAILY AT NIGHT
     Route: 048
  8. AVIVAVASC [Concomitant]
     Indication: Hypertension
     Dosage: 1 TAB MORNING DAILY(10/160)
     Route: 048
  9. BENFOTIAMINE\CYANOCOBALAMIN\PYRIDOXINE HYDROCHLORIDE [Concomitant]
     Active Substance: BENFOTIAMINE\CYANOCOBALAMIN\PYRIDOXINE HYDROCHLORIDE
     Indication: Nervous system disorder
     Dosage: 1 TAB DAILY
     Route: 048
  10. JUSPRIN [Concomitant]
     Indication: Anticoagulant therapy
     Dosage: 1 TAB MORNING AFTER BREAKFAST DAILY
     Route: 048

REACTIONS (2)
  - Corneal infiltrates [Not Recovered/Not Resolved]
  - Hyperglycaemia [Not Recovered/Not Resolved]
